FAERS Safety Report 5087444-2 (Version None)
Quarter: 2006Q3

REPORT INFORMATION
  Report Type: 
  Country: None (occurrence: None)
  Receive Date: 20060727
  Receipt Date: 20060501
  Transmission Date: 20061208
  Serious: Yes (Other)
  Sender: FDA-Public Use
  Company Number: 2006059358

PATIENT
  Sex: Male

DRUGS (9)
  1. LYRICA [Suspect]
     Indication: NEURALGIA
     Dosage: (2 IN 1 D), ORAL
     Route: 048
     Dates: start: 20050101, end: 20060401
  2. METHADONE HCL [Concomitant]
  3. LASIX [Concomitant]
  4. POTASSIUM [Concomitant]
  5. ASPIRIN [Concomitant]
  6. GEMFIBROZIL [Concomitant]
  7. TOPROL-XL [Concomitant]
  8. ACETAMINOPHEN/PHEYLEPHRINE HYDROCHLORIDE [Concomitant]
  9. LORAZEPAM [Concomitant]

REACTIONS (4)
  - BURNING SENSATION [None]
  - OEDEMA [None]
  - PRURITUS [None]
  - RASH [None]
